FAERS Safety Report 17074520 (Version 1)
Quarter: 2019Q4

REPORT INFORMATION
  Report Type: Report from Study
  Country: TR (occurrence: TR)
  Receive Date: 20191126
  Receipt Date: 20191126
  Transmission Date: 20200122
  Serious: Yes (Congenital Anomaly, Other)
  Sender: FDA-Public Use
  Company Number: TR-VISTAPHARM, INC.-VER201911-001297

PATIENT
  Weight: 3 kg

DRUGS (2)
  1. LAMOTRIGINE. [Suspect]
     Active Substance: LAMOTRIGINE
     Dosage: MATERNAL DOSE: 1 X 25MG, FROM 7 WEEKS TILL TERM
     Route: 064
  2. VALPROIC ACID. [Suspect]
     Active Substance: VALPROIC ACID
     Dosage: MATERNAL DOSE: 1000 MG/DAY (2 X 500 MG),  BETWEEN THE WEEKS?3 - 7
     Route: 064

REACTIONS (2)
  - Foetal exposure during pregnancy [Unknown]
  - Cataract congenital [Not Recovered/Not Resolved]
